FAERS Safety Report 20006069 (Version 1)
Quarter: 2021Q4

REPORT INFORMATION
  Report Type: Report from Study
  Country: None (occurrence: US)
  Receive Date: 20211027
  Receipt Date: 20211027
  Transmission Date: 20220303
  Serious: Yes (Other)
  Sender: FDA-Public Use
  Company Number: US-ABBVIE-21K-163-4134838-00

PATIENT
  Sex: Female

DRUGS (1)
  1. RINVOQ [Suspect]
     Active Substance: UPADACITINIB
     Indication: Rheumatoid arthritis
     Route: 048
     Dates: start: 2020, end: 202110

REACTIONS (8)
  - Hernia [Recovered/Resolved]
  - Hysterectomy [Unknown]
  - Post procedural complication [Unknown]
  - Peritoneal disorder [Unknown]
  - Diverticulum [Unknown]
  - Complication associated with device [Unknown]
  - Drug ineffective [Recovering/Resolving]
  - Rheumatoid arthritis [Not Recovered/Not Resolved]

NARRATIVE: CASE EVENT DATE: 20210101
